FAERS Safety Report 7875345-3 (Version None)
Quarter: 2011Q4

REPORT INFORMATION
  Report Type: 
  Country: None (occurrence: None)
  Receive Date: 20111031
  Receipt Date: 20111021
  Transmission Date: 20120403
  Serious: Yes (Death, Hospitalization)
  Sender: FDA-Public Use
  Company Number: US-GLAXOSMITHKLINE-A0950351A

PATIENT
  Age: 84 Year
  Sex: Female

DRUGS (8)
  1. ADVAIR DISKUS 100/50 [Suspect]
     Indication: CHRONIC OBSTRUCTIVE PULMONARY DISEASE
     Route: 055
  2. OMEPRAZOLE [Concomitant]
  3. DILTIAZEM HCL [Concomitant]
  4. LISINOPRIL [Concomitant]
  5. LOVAZA [Concomitant]
  6. OXYGEN [Concomitant]
  7. MULTI-VITAMIN [Concomitant]
  8. DIGOXIN [Concomitant]

REACTIONS (5)
  - HEPATIC MASS [None]
  - BLADDER CANCER [None]
  - METASTASES TO LIVER [None]
  - PULMONARY MASS [None]
  - HEPATIC NEOPLASM MALIGNANT [None]
